FAERS Safety Report 6492588-4 (Version None)
Quarter: 2009Q4

REPORT INFORMATION
  Report Type: 
  Country: None (occurrence: None)
  Receive Date: 20091214
  Receipt Date: 20091209
  Transmission Date: 20100525
  Serious: Yes (Death, Hospitalization)
  Sender: FDA-Public Use
  Company Number: JP-SANOFI-AVENTIS-200912590JP

PATIENT
  Age: 60 Year
  Sex: Male
  Weight: 80.4 kg

DRUGS (7)
  1. GLIMEPIRIDE [Suspect]
     Indication: TYPE 2 DIABETES MELLITUS
     Route: 048
     Dates: start: 20081007, end: 20090827
  2. GLIMEPIRIDE [Suspect]
     Route: 048
     Dates: start: 20090828, end: 20090911
  3. ORAL BLOOD GLUCOSE LOWERING DRUGS [Suspect]
     Indication: TYPE 2 DIABETES MELLITUS
     Dosage: DOSE AS USED: 1 TAB
     Route: 048
     Dates: start: 20081227, end: 20090316
  4. ORAL BLOOD GLUCOSE LOWERING DRUGS [Suspect]
     Route: 048
     Dates: start: 20090317, end: 20090911
  5. ARTIST [Concomitant]
     Indication: HYPERTENSION
     Route: 048
     Dates: start: 20081008, end: 20090911
  6. ADALAT CC [Concomitant]
     Indication: HYPERTENSION
     Route: 048
     Dates: start: 20081008, end: 20090911
  7. LOSARTAN POTASSIUM AND HYDROCHLOROTHIAZIDE [Concomitant]
     Indication: HYPERTENSION
     Dosage: DOSE AS USED: 1 TABLET
     Route: 048
     Dates: start: 20081105, end: 20090911

REACTIONS (8)
  - ACUTE RESPIRATORY DISTRESS SYNDROME [None]
  - CONDITION AGGRAVATED [None]
  - DIABETES MELLITUS [None]
  - DIALYSIS [None]
  - DISSEMINATED INTRAVASCULAR COAGULATION [None]
  - GAS GANGRENE [None]
  - MULTI-ORGAN FAILURE [None]
  - SEPTIC SHOCK [None]
